FAERS Safety Report 8470013-1 (Version None)
Quarter: 2012Q2

REPORT INFORMATION
  Report Type: 
  Country: None (occurrence: None)
  Receive Date: 20120627
  Receipt Date: 20120619
  Transmission Date: 20120825
  Serious: No
  Sender: FDA-Public Use
  Company Number: US-BIOGENIDEC-2012BI021788

PATIENT
  Age: 44 Year
  Sex: Male

DRUGS (1)
  1. TYSABRI [Suspect]
     Indication: MULTIPLE SCLEROSIS
     Route: 042
     Dates: start: 20120221, end: 20120619

REACTIONS (8)
  - INCOHERENT [None]
  - FLUSHING [None]
  - RASH ERYTHEMATOUS [None]
  - VOMITING [None]
  - NAUSEA [None]
  - DYSPNOEA [None]
  - TREMOR [None]
  - CHILLS [None]
